FAERS Safety Report 6475003-6 (Version None)
Quarter: 2009Q4

REPORT INFORMATION
  Report Type: 
  Country: None (occurrence: None)
  Receive Date: 20091204
  Receipt Date: 20090407
  Transmission Date: 20100525
  Serious: Yes (Hospitalization)
  Sender: FDA-Public Use
  Company Number: FR-ELI_LILLY_AND_COMPANY-FR200903003321

PATIENT
  Age: 55 Year
  Sex: Female

DRUGS (4)
  1. CYMBALTA [Suspect]
     Indication: PAIN
     Dosage: 60 MG, DAILY (1/D)
     Route: 048
     Dates: start: 20090203, end: 20090221
  2. ISOPTIN [Concomitant]
     Indication: TACHYCARDIA
     Dosage: 1 D/F, DAILY (1/D)
     Route: 048
  3. VASTAREL [Concomitant]
     Dosage: 2 D/F, DAILY (1/D)
     Route: 048
  4. XANAX [Concomitant]
     Dosage: 1 MG, DAILY (1/D)
     Route: 048

REACTIONS (2)
  - CEREBELLAR SYNDROME [None]
  - VESTIBULAR DISORDER [None]
